FAERS Safety Report 11319850 (Version 1)
Quarter: 2015Q3

REPORT INFORMATION
  Report Type: Spontaneous
  Country: US (occurrence: None)
  Receive Date: 20150728
  Receipt Date: 20150728
  Transmission Date: 20151125
  Serious: Yes (Hospitalization)
  Sender: FDA-Public Use
  Company Number: None

PATIENT
  Age: 65 Year
  Sex: Male
  Weight: 87.9 kg

DRUGS (19)
  1. RIFAXIMIN [Concomitant]
     Active Substance: RIFAXIMIN
  2. TAMSULOSIN [Concomitant]
     Active Substance: TAMSULOSIN
  3. ASPARTAME [Concomitant]
     Active Substance: ASPARTAME
  4. COCLCHICINE [Concomitant]
  5. FINASTERIDE. [Concomitant]
     Active Substance: FINASTERIDE
  6. PREDNISONE. [Concomitant]
     Active Substance: PREDNISONE
  7. ASPIRIN. [Concomitant]
     Active Substance: ASPIRIN
  8. LABETALOL [Concomitant]
     Active Substance: LABETALOL\LABETALOL HYDROCHLORIDE
  9. HYDROCORTISONE. [Concomitant]
     Active Substance: HYDROCORTISONE
  10. PANTOPRAZOLE [Concomitant]
     Active Substance: PANTOPRAZOLE SODIUM
  11. MORPHINE [Concomitant]
     Active Substance: MORPHINE
  12. INSULIN GLULISINE [Concomitant]
     Active Substance: INSULIN GLULISINE
  13. MESALAMINE. [Concomitant]
     Active Substance: MESALAMINE
  14. HARVONI [Suspect]
     Active Substance: LEDIPASVIR\SOFOSBUVIR
     Indication: HEPATITIS C
     Dosage: 90/400MG DAILY
     Route: 048
     Dates: start: 20150410, end: 20150702
  15. FUROSEMIDE. [Concomitant]
     Active Substance: FUROSEMIDE
  16. ELCTROLYTES [Concomitant]
  17. ALLPLURINOL [Concomitant]
  18. LIDOCAINE. [Concomitant]
     Active Substance: LIDOCAINE
  19. PEG 3350 [Concomitant]
     Active Substance: POLYETHYLENE GLYCOL 3350

REACTIONS (5)
  - Vomiting [None]
  - Decreased appetite [None]
  - Gout [None]
  - Pyrexia [None]
  - Nausea [None]

NARRATIVE: CASE EVENT DATE: 20150615
